FAERS Safety Report 5964376-6 (Version None)
Quarter: 2008Q4

REPORT INFORMATION
  Report Type: 
  Country: None (occurrence: None)
  Receive Date: 20081124
  Receipt Date: 20081117
  Transmission Date: 20090506
  Serious: Yes (Hospitalization)
  Sender: FDA-Public Use
  Company Number: US-GILEAD-2008-0019038

PATIENT
  Sex: Female

DRUGS (9)
  1. LETAIRIS [Suspect]
     Indication: PULMONARY ARTERIAL HYPERTENSION
     Route: 048
  2. PHOSLO [Concomitant]
  3. FUROSEMIDE [Concomitant]
  4. AMIODARONE HCL [Concomitant]
  5. CYMBALTA [Concomitant]
  6. SPIRONOLACTONE [Concomitant]
  7. ALLOPURINOL [Concomitant]
  8. LYRICA [Concomitant]
  9. GLUCOVANCE [Concomitant]

REACTIONS (1)
  - LETHARGY [None]
